FAERS Safety Report 7880164-8 (Version None)
Quarter: 2011Q4

REPORT INFORMATION
  Report Type: 
  Country: None (occurrence: None)
  Receive Date: 20111101
  Receipt Date: 20111031
  Transmission Date: 20120403
  Serious: No
  Sender: FDA-Public Use
  Company Number: US-PFIZER INC-2011265446

PATIENT
  Sex: Male

DRUGS (4)
  1. LYRICA [Suspect]
     Indication: FIBROMYALGIA
     Dosage: UNK
     Dates: start: 19900101
  2. DILANTIN-125 [Suspect]
     Dosage: UNK
     Dates: start: 20000101
  3. LIPITOR [Suspect]
     Dosage: UNK
     Dates: start: 19910101
  4. EFFEXOR [Suspect]
     Dosage: UNK
     Dates: start: 19910101

REACTIONS (2)
  - INSOMNIA [None]
  - HEADACHE [None]
